FAERS Safety Report 5147054-5 (Version None)
Quarter: 2006Q4

REPORT INFORMATION
  Report Type: 
  Country: None (occurrence: None)
  Receive Date: 20061103
  Receipt Date: 20061024
  Transmission Date: 20070319
  Serious: Yes (Other)
  Sender: FDA-Public Use
  Company Number: 2006130545

PATIENT
  Age: 37 Year
  Sex: Female

DRUGS (1)
  1. DEPO-PROVERA [Suspect]
     Indication: UTERINE LEIOMYOMA
     Dosage: 150 MG (150 MG, SINGLE INJECTION), INTRAMUSCULAR
     Route: 030
     Dates: start: 20051101, end: 20051101

REACTIONS (5)
  - AMENORRHOEA [None]
  - DRUG INEFFECTIVE [None]
  - GASTROINTESTINAL INFECTION [None]
  - HELICOBACTER INFECTION [None]
  - OLIGOMENORRHOEA [None]
